FAERS Safety Report 6145371-3 (Version None)
Quarter: 2009Q2

REPORT INFORMATION
  Report Type: 
  Country: None (occurrence: None)
  Receive Date: 20090402
  Receipt Date: 20090331
  Transmission Date: 20091009
  Serious: Yes (Hospitalization)
  Sender: FDA-Public Use
  Company Number: 1000005553

PATIENT
  Age: 56 Year
  Sex: Female

DRUGS (11)
  1. LEXAPRO [Suspect]
     Indication: DEPRESSION
     Dosage: 30 MG (30 MG, 1 IN 1 D), ORAL; 8-9 TABLETS
     Route: 048
     Dates: start: 20090330, end: 20090331
  2. LEXAPRO [Suspect]
     Indication: DEPRESSION
     Dosage: 30 MG (30 MG, 1 IN 1 D), ORAL; 8-9 TABLETS
     Route: 048
     Dates: start: 20061101
  3. AMBIEN [Concomitant]
  4. XANAX [Concomitant]
  5. LAMICTAL [Concomitant]
  6. NEURONTIN [Concomitant]
  7. PAIN PATCH (NOS) [Concomitant]
  8. LISINOPRIL [Concomitant]
  9. AMITRIPTYLINE HCL [Concomitant]
  10. OXYCONTIN [Concomitant]
  11. OXYGEN [Concomitant]

REACTIONS (3)
  - ACCIDENTAL OVERDOSE [None]
  - CEREBROVASCULAR ACCIDENT [None]
  - OVERDOSE [None]
